FAERS Safety Report 24432982 (Version 1)
Quarter: 2024Q4

REPORT INFORMATION
  Report Type: Spontaneous
  Country: LT (occurrence: LT)
  Receive Date: 20241014
  Receipt Date: 20241014
  Transmission Date: 20250115
  Serious: Yes (Death, Other)
  Sender: BAYER HEALTHCARE PHARMACEUTICALS INC.
  Company Number: LT-BAYER-2024A139395

PATIENT
  Age: 61 Year
  Sex: Male

DRUGS (1)
  1. XOFIGO [Suspect]
     Active Substance: RADIUM RA-223 DICHLORIDE
     Dosage: UNK
     Dates: start: 20240530, end: 20240530

REACTIONS (2)
  - Death [Fatal]
  - Anaemia [None]

NARRATIVE: CASE EVENT DATE: 20240618
